FAERS Safety Report 15008120 (Version 1)
Quarter: 2018Q2

REPORT INFORMATION
  Report Type: Spontaneous
  Country: US (occurrence: US)
  Receive Date: 20180613
  Receipt Date: 20180613
  Transmission Date: 20180711
  Serious: Yes (Other)
  Sender: FDA-Public Use
  Company Number: US-DSJP-DSU-2018-122822

PATIENT

DRUGS (2)
  1. WELCHOL [Suspect]
     Active Substance: COLESEVELAM HYDROCHLORIDE
     Indication: IRRITABLE BOWEL SYNDROME
     Dosage: 3750 MG, QD
     Route: 048
     Dates: start: 2000
  2. OMEPRAZOLE. [Concomitant]
     Active Substance: OMEPRAZOLE
     Indication: GASTROOESOPHAGEAL REFLUX DISEASE
     Dosage: 40 MG, QD
     Route: 048

REACTIONS (9)
  - Thrombosis [Unknown]
  - Fluid retention [Unknown]
  - Angina pectoris [Unknown]
  - Type 2 diabetes mellitus [Unknown]
  - Neuropathy peripheral [Unknown]
  - Chest pain [Unknown]
  - Hypertension [Unknown]
  - Blood cholesterol increased [Unknown]
  - Off label use [Not Recovered/Not Resolved]

NARRATIVE: CASE EVENT DATE: 2000
